FAERS Safety Report 5714328-6 (Version None)
Quarter: 2008Q2

REPORT INFORMATION
  Report Type: 
  Country: None (occurrence: None)
  Receive Date: 20080422
  Receipt Date: 20080422
  Transmission Date: 20081010
  Serious: Yes (Other)
  Sender: FDA-Public Use
  Company Number: None

PATIENT
  Sex: Male

DRUGS (8)
  1. REVLIMID [Suspect]
     Indication: AMYLOIDOSIS
     Dosage: REVLIMID  10MG 3 TIMES/WEEK PO
     Route: 048
  2. ASPIRIN [Concomitant]
  3. PROCRIT [Concomitant]
  4. GABAPENTIN [Concomitant]
  5. GLIPIZIDE [Concomitant]
  6. PHOSLO [Concomitant]
  7. LIPITOR [Concomitant]
  8. LEVOTHROID [Concomitant]

REACTIONS (1)
  - THROMBOCYTOPENIA [None]
